FAERS Safety Report 21313639 (Version 6)
Quarter: 2023Q2

REPORT INFORMATION
  Report Type: Spontaneous
  Country: JP (occurrence: JP)
  Receive Date: 20220909
  Receipt Date: 20230428
  Transmission Date: 20230722
  Serious: Yes (Hospitalization)
  Sender: FDA-Public Use
  Company Number: JP-GLAXOSMITHKLINE-JP2022JPN129383

PATIENT

DRUGS (16)
  1. BENLYSTA [Suspect]
     Active Substance: BELIMUMAB
     Indication: Systemic lupus erythematosus
     Dosage: 200 MG, EVERY WEEK
     Dates: start: 20190510
  2. AZILVA TABLETS [Concomitant]
     Dosage: 40 MG, QD, AFTER DINNER
     Route: 048
  3. CARVEDILOL [Concomitant]
     Active Substance: CARVEDILOL
     Dosage: 20 MG, QD, AFTER DINNER
     Route: 048
  4. UNSPECIFIED INGREDIENT [Concomitant]
     Active Substance: UNSPECIFIED INGREDIENT
     Dosage: 6 DF, QD, AFTER BREAKFAST
     Route: 048
  5. CELLCEPT [Concomitant]
     Active Substance: MYCOPHENOLATE MOFETIL
     Dosage: 250 MG, BID, AFTER BREAKFAST AND DINNER
     Route: 048
  6. CALCIUM CARBONATE [Concomitant]
     Active Substance: CALCIUM CARBONATE
     Dosage: 1500 MG, BID, AFTER BREAKFAST AND DINNER
     Route: 048
  7. ADALAT-CR TABLET [Concomitant]
     Dosage: 20 MG, BID, AFTER BREAKFAST AND DINNER
     Route: 048
  8. CARDENALIN TABLET [Concomitant]
     Dosage: 4 MG, BID, AFTER BREAKFAST AND DINNER
     Route: 048
  9. ALDOMET TABLETS [Concomitant]
     Dosage: 500 MG, BID, AFTER BREAKFAST AND DINNER
     Route: 048
  10. ITOROL TABLET [Concomitant]
     Dosage: 20 MG, BID, AFTER BREAKFAST AND DINNER
     Route: 048
  11. FOSRENOL OD TABLET [Concomitant]
     Dosage: 1000 MG, BID, AFTER LUNCH AND DINNER
     Route: 048
  12. FERRIC CITRATE ANHYDROUS [Concomitant]
     Active Substance: FERRIC CITRATE ANHYDROUS
     Dosage: 750 MG, BID, AFTER LUNCH AND DINNER
     Route: 048
  13. SULFAMETHOXAZOLE\TRIMETHOPRIM [Concomitant]
     Active Substance: SULFAMETHOXAZOLE\TRIMETHOPRIM
     Dosage: 1 DF,QD, AFTER BREAKFAST
     Route: 048
  14. E KEPPRA TABLETS [Concomitant]
     Dosage: 500 MG, QD, AFTER BREAKFAST
  15. ALPRAZOLAM [Concomitant]
     Active Substance: ALPRAZOLAM
     Dosage: 0.4 MG, QD, AFTER DINNER
     Route: 048
  16. CERCINE [Concomitant]
     Active Substance: DIAZEPAM
     Dosage: 5 MG, WHEN FRUSTRATED, FOR 7 DOSES
     Route: 048

REACTIONS (3)
  - Panic disorder [Recovered/Resolved]
  - Palpitations [Recovered/Resolved]
  - Chest discomfort [Recovered/Resolved]

NARRATIVE: CASE EVENT DATE: 20220801
